FAERS Safety Report 5585673-2 (Version None)
Quarter: 2008Q1

REPORT INFORMATION
  Report Type: 
  Country: None (occurrence: None)
  Receive Date: 20080109
  Receipt Date: 20080102
  Transmission Date: 20080703
  Serious: Yes (Other)
  Sender: FDA-Public Use
  Company Number: US-JNJFOC-20080100542

PATIENT
  Age: 48 Year
  Sex: Female
  Weight: 63.5 kg

DRUGS (6)
  1. LEVAQUIN [Suspect]
     Indication: URINARY TRACT INFECTION
     Route: 048
  2. TIAZIC [Concomitant]
     Indication: HYPERTENSION
     Route: 048
  3. SYNTHROID [Concomitant]
     Indication: HYPOTHYROIDISM
     Route: 065
  4. PRIMARIN [Concomitant]
     Indication: HORMONE REPLACEMENT THERAPY
     Route: 048
  5. NEXIUM [Concomitant]
     Indication: COLITIS
     Route: 048
  6. SEREVENT [Concomitant]
     Indication: ASTHMA
     Route: 055

REACTIONS (4)
  - ARTHRALGIA [None]
  - FLUID RETENTION [None]
  - JOINT SWELLING [None]
  - URINARY TRACT INFECTION [None]
